FAERS Safety Report 7710911-7 (Version None)
Quarter: 2011Q3

REPORT INFORMATION
  Report Type: 
  Country: None (occurrence: None)
  Receive Date: 20110825
  Receipt Date: 20110816
  Transmission Date: 20111222
  Serious: Yes (Other)
  Sender: FDA-Public Use
  Company Number: FR-ASTRAZENECA-2011SE49610

PATIENT
  Age: 76 Year
  Sex: Male

DRUGS (3)
  1. IMOVANE [Concomitant]
     Indication: SLEEP DISORDER
  2. GAVISCON [Concomitant]
     Indication: GASTROOESOPHAGEAL REFLUX DISEASE
  3. NEXIUM [Suspect]
     Indication: HIATUS HERNIA
     Route: 048
     Dates: start: 20080101

REACTIONS (4)
  - VISUAL IMPAIRMENT [None]
  - POLYNEUROPATHY [None]
  - FACE OEDEMA [None]
  - EAR DISCOMFORT [None]
